FAERS Safety Report 6963309-3 (Version None)
Quarter: 2010Q3

REPORT INFORMATION
  Report Type: 
  Country: None (occurrence: None)
  Receive Date: 20100823
  Receipt Date: 20100602
  Transmission Date: 20110219
  Serious: No
  Sender: FDA-Public Use
  Company Number: 013123

PATIENT
  Sex: Female
  Weight: 86 kg

DRUGS (4)
  1. CIMZIA [Suspect]
     Indication: CROHN'S DISEASE
     Dosage: (SUBCUTANEOUS)
     Route: 058
     Dates: start: 20091001
  2. PREDNISONE [Concomitant]
  3. POTASSIUM [Concomitant]
  4. LASIX [Concomitant]

REACTIONS (2)
  - NAUSEA [None]
  - PYREXIA [None]
